FAERS Safety Report 9164942 (Version 1)
Quarter: 2013Q1

REPORT INFORMATION
  Report Type: Spontaneous
  Country: US (occurrence: US)
  Receive Date: 20130315
  Receipt Date: 20130315
  Transmission Date: 20140127
  Serious: Yes (Other)
  Sender: FDA-Public Use
  Company Number: US-JNJFOC-20130302065

PATIENT
  Age: 81 Year
  Sex: Female
  Weight: 40.82 kg

DRUGS (6)
  1. REMICADE [Suspect]
     Indication: RHEUMATOID ARTHRITIS
     Route: 042
     Dates: start: 20130218
  2. REMICADE [Suspect]
     Indication: RHEUMATOID ARTHRITIS
     Route: 042
     Dates: start: 20130204
  3. METHOTREXATE [Suspect]
     Indication: RHEUMATOID ARTHRITIS
     Dosage: 7.5MG/TABLET/2.5MG
     Route: 048
     Dates: start: 2003
  4. ARMOUR THYROID [Concomitant]
     Indication: THYROID DISORDER
     Route: 048
     Dates: start: 1988
  5. LOSARTAN [Concomitant]
     Indication: BLOOD PRESSURE
     Route: 048
  6. VITAMIN [Concomitant]
     Route: 065

REACTIONS (3)
  - Weight increased [Not Recovered/Not Resolved]
  - Blood pressure increased [Unknown]
  - Fatigue [Recovering/Resolving]
